FAERS Safety Report 24927406 (Version 1)
Quarter: 2025Q1

REPORT INFORMATION
  Report Type: Spontaneous
  Country: GB (occurrence: GB)
  Receive Date: 20250205
  Receipt Date: 20250205
  Transmission Date: 20250408
  Serious: Yes (Other)
  Sender: DEXCEL
  Company Number: None

PATIENT
  Age: 71 Year
  Sex: Female

DRUGS (9)
  1. Bisoprolol 3.75mg tabletsBISOPROLOL (Specific Substance SUB927) [Concomitant]
  2. LANSOPRAZOLE [Suspect]
     Active Substance: LANSOPRAZOLE
  3. Atorvastatin 80mg tablets [Concomitant]
  4. Perindopril erbumine 8mg tabletsPERINDOPRIL ERBUMINE (Specific Subs... [Concomitant]
  5. Glyceryl trinitrate 400micrograms/dose sublingual sprayGLYCERYL TRI... [Concomitant]
  6. Terbutaline 500micrograms/dose dry powder inhalerTERBUTALINE (Speci... [Concomitant]
  7. ASPIRIN [Suspect]
     Active Substance: ASPIRIN
  8. CLOPIDOGREL [Suspect]
     Active Substance: CLOPIDOGREL BISULFATE
  9. Felodipine 5mg modified-release tabletsFELODIPINE (Specific Substan... [Concomitant]

REACTIONS (4)
  - Face oedema [Not Recovered/Not Resolved]
  - Epistaxis [Unknown]
  - Cough [Unknown]
  - Skin oedema [Not Recovered/Not Resolved]

NARRATIVE: CASE EVENT DATE: 20250124
